FAERS Safety Report 4309953-3 (Version None)
Quarter: 2004Q1

REPORT INFORMATION
  Report Type: 
  Country: None (occurrence: None)
  Receive Date: 20040303
  Receipt Date: 20040223
  Transmission Date: 20041129
  Serious: Yes (Hospitalization, Other)
  Sender: FDA-Public Use
  Company Number: US-BRISTOL-MYERS SQUIBB COMPANY-12514782

PATIENT
  Age: 41 Year
  Sex: Female

DRUGS (5)
  1. SERZONE [Suspect]
     Indication: DEPRESSION
     Route: 048
     Dates: start: 20000901, end: 20020502
  2. PREMARIN [Concomitant]
  3. PRILOSEC [Concomitant]
  4. RANITIDINE [Concomitant]
  5. LIQUIBID-D [Concomitant]

REACTIONS (5)
  - DYSPEPSIA [None]
  - FATIGUE [None]
  - HAEMANGIOMA OF LIVER [None]
  - MALAISE [None]
  - NAUSEA [None]
